FAERS Safety Report 25416949 (Version 1)
Quarter: 2025Q2

REPORT INFORMATION
  Report Type: Spontaneous
  Country: CN (occurrence: CN)
  Receive Date: 20250610
  Receipt Date: 20250610
  Transmission Date: 20250717
  Serious: Yes (Hospitalization)
  Sender: ROCHE
  Company Number: CN-BoehringerIngelheim-2025-BI-073581

PATIENT
  Age: 60 Year
  Sex: Male
  Weight: 97 kg

DRUGS (3)
  1. ALTEPLASE [Suspect]
     Active Substance: ALTEPLASE
     Indication: Thrombolysis
     Dosage: 10% OF TOTAL DOSE ?TOTAL DOSE: 87
     Route: 042
     Dates: start: 20250507, end: 20250507
  2. ALTEPLASE [Suspect]
     Active Substance: ALTEPLASE
     Dosage: 90% OF TOTAL DOSE ?TOTAL DOSE: 87
     Route: 042
     Dates: start: 20250507, end: 20250507
  3. SODIUM CHLORIDE [Concomitant]
     Active Substance: SODIUM CHLORIDE
     Route: 042
     Dates: start: 20250507, end: 20250507

REACTIONS (2)
  - Angioedema [Recovering/Resolving]
  - Off label use [Unknown]

NARRATIVE: CASE EVENT DATE: 20250507
